FAERS Safety Report 8423266-X (Version None)
Quarter: 2012Q2

REPORT INFORMATION
  Report Type: 
  Country: None (occurrence: None)
  Receive Date: 20120323
  Receipt Date: 20110405
  Transmission Date: 20120825
  Serious: Yes (Hospitalization)
  Sender: FDA-Public Use
  Company Number: 163-21880-11022311

PATIENT
  Age: 72 Year
  Sex: Male

DRUGS (14)
  1. FOSAMAX [Concomitant]
  2. REVLIMID [Suspect]
     Indication: MULTIPLE MYELOMA
     Dosage: 10 MG, 1 IN 1 D, PO ; 10 MG, DAILY X 21 DAYS, PO
     Route: 048
     Dates: start: 20101013
  3. REVLIMID [Suspect]
     Indication: MULTIPLE MYELOMA
     Dosage: 10 MG, 1 IN 1 D, PO ; 10 MG, DAILY X 21 DAYS, PO
     Route: 048
     Dates: start: 20110201
  4. ASPIRIN [Concomitant]
  5. GLUCOTROL [Concomitant]
  6. CELEBREX [Concomitant]
  7. MULTAQ [Concomitant]
  8. PROTONIX [Concomitant]
  9. LANOXIN [Concomitant]
  10. FUROSEMIDE [Concomitant]
  11. LORCET-HD [Concomitant]
  12. PRILOSEC [Concomitant]
  13. DIGOXIN [Concomitant]
  14. POTASSIUM CHLORIDE [Concomitant]

REACTIONS (1)
  - PNEUMONIA [None]
